FAERS Safety Report 8945210 (Version 3)
Quarter: 2016Q4

REPORT INFORMATION
  Report Type: Report from Study
  Country: DE (occurrence: DE)
  Receive Date: 20121205
  Receipt Date: 20161115
  Transmission Date: 20170207
  Serious: Yes (Other)
  Sender: FDA-Public Use
  Company Number: DE-ROCHE-1161580

PATIENT

DRUGS (3)
  1. BENDAMUSTINE [Suspect]
     Active Substance: BENDAMUSTINE
     Indication: CHRONIC LYMPHOCYTIC LEUKAEMIA
     Dosage: 90 TO 120 MG/M2 AS A 30-MINUTE INFUSION ON DAYS 1 AND 2 EVERY 3-4 WEEKS
     Route: 065
  2. RITUXIMAB [Suspect]
     Active Substance: RITUXIMAB
     Indication: CHRONIC LYMPHOCYTIC LEUKAEMIA
     Dosage: ON DAY 1 (FIRST CYCLE; AND 500 MG/M2 THEREAFTER)
     Route: 042
  3. PREDNISONE. [Concomitant]
     Active Substance: PREDNISONE
     Dosage: DAY 1 AND 2,DAYS 1-3,DAYS 1-4 AT DOSES RANGING FROM 40 MG TO 50/60/100 MG/M2
     Route: 048

REACTIONS (10)
  - Depression [Unknown]
  - Infection [Unknown]
  - Anaemia [Unknown]
  - Blood creatinine increased [Unknown]
  - Thrombocytopenia [Unknown]
  - Febrile neutropenia [Unknown]
  - Leukopenia [Unknown]
  - Fatigue [Unknown]
  - Infestation [Unknown]
  - Skin toxicity [Unknown]
